FAERS Safety Report 17433883 (Version 1)
Quarter: 2020Q1

REPORT INFORMATION
  Report Type: Spontaneous
  Country: TH (occurrence: TH)
  Receive Date: 20200219
  Receipt Date: 20200219
  Transmission Date: 20200409
  Serious: Yes (Other)
  Sender: FDA-Public Use
  Company Number: TH-SUN PHARMACEUTICAL INDUSTRIES LTD-2020R1-236540

PATIENT
  Age: 71 Year
  Sex: Female

DRUGS (3)
  1. ERLOTINIB [Suspect]
     Active Substance: ERLOTINIB
     Indication: NON-SMALL CELL LUNG CANCER
  2. ERLOTINIB [Suspect]
     Active Substance: ERLOTINIB
     Indication: METASTASES TO CENTRAL NERVOUS SYSTEM
     Dosage: 150 MILLIGRAM, DAILY
     Route: 065
  3. ERLOTINIB [Suspect]
     Active Substance: ERLOTINIB
     Indication: METASTASES TO LYMPH NODES

REACTIONS (7)
  - Metastases to bone [Unknown]
  - Diarrhoea [Recovering/Resolving]
  - Mucosal inflammation [Recovering/Resolving]
  - Pruritus [Recovering/Resolving]
  - Paronychia [Recovering/Resolving]
  - Dermatitis acneiform [Recovering/Resolving]
  - Dry skin [Recovering/Resolving]
